FAERS Safety Report 7402928-7 (Version None)
Quarter: 2011Q2

REPORT INFORMATION
  Report Type: 
  Country: None (occurrence: None)
  Receive Date: 20110408
  Receipt Date: 20110401
  Transmission Date: 20111010
  Serious: Yes (Disabling)
  Sender: FDA-Public Use
  Company Number: GB-NAPPMUNDI-GBR-2010-0006510

PATIENT
  Sex: Female

DRUGS (8)
  1. CANDESARTAN [Concomitant]
     Indication: BLOOD PRESSURE INCREASED
     Dosage: 16 GRAM, DAILY
     Route: 048
     Dates: start: 20040101
  2. ASPIRIN [Concomitant]
     Indication: TRANSIENT ISCHAEMIC ATTACK
     Dosage: 150 MG, DAILY
     Route: 048
     Dates: start: 20020101
  3. FLUVASTATIN [Concomitant]
     Indication: TRANSIENT ISCHAEMIC ATTACK
     Dosage: 40 GRAM, DAILY
     Route: 048
     Dates: start: 20090101
  4. LANSOPRAZOLE [Concomitant]
     Indication: OESOPHAGITIS
     Dosage: 30 GRAM, DAILY
     Route: 048
     Dates: start: 20040101
  5. BTDS 5 MG [Suspect]
     Indication: ARTHRALGIA
     Dosage: 5 MCG, UNK
     Route: 062
     Dates: start: 20100427
  6. BTDS 5 MG [Suspect]
     Indication: OSTEOARTHRITIS
  7. BENDROFLUAZIDE [Concomitant]
     Indication: BLOOD PRESSURE INCREASED
     Dosage: 2.5 UNK, DAILY
     Route: 048
     Dates: start: 20030101
  8. ACUPAN [Concomitant]
     Indication: PAIN

REACTIONS (5)
  - NAUSEA [None]
  - WALKING DISABILITY [None]
  - VOMITING [None]
  - SOMNOLENCE [None]
  - MALAISE [None]
